FAERS Safety Report 12214444 (Version 1)
Quarter: 2016Q1

REPORT INFORMATION
  Report Type: Spontaneous
  Country: BE (occurrence: BE)
  Receive Date: 20160328
  Receipt Date: 20160328
  Transmission Date: 20160526
  Serious: Yes (Hospitalization)
  Sender: FDA-Public Use
  Company Number: PHHY2016BE037986

PATIENT
  Age: 78 Year
  Sex: Female

DRUGS (1)
  1. EXELON PATCH [Suspect]
     Active Substance: RIVASTIGMINE
     Indication: PRODUCT USED FOR UNKNOWN INDICATION
     Dosage: UNK
     Route: 062
     Dates: start: 2010

REACTIONS (11)
  - Pancreatitis [Recovering/Resolving]
  - Seizure [Recovering/Resolving]
  - Drug administration error [Recovering/Resolving]
  - Productive cough [Recovering/Resolving]
  - Pneumonia klebsiella [Recovering/Resolving]
  - Staring [Recovering/Resolving]
  - Cystitis [Recovering/Resolving]
  - Cardiac disorder [Recovering/Resolving]
  - Renal impairment [Recovering/Resolving]
  - Confusional state [Recovering/Resolving]
  - Overdose [Recovering/Resolving]

NARRATIVE: CASE EVENT DATE: 20160320
